FAERS Safety Report 4883892-1 (Version None)
Quarter: 2006Q1

REPORT INFORMATION
  Report Type: 
  Country: None (occurrence: None)
  Receive Date: 20060118
  Receipt Date: 20060109
  Transmission Date: 20060701
  Serious: Yes (Death)
  Sender: FDA-Public Use
  Company Number: US-BRISTOL-MYERS SQUIBB COMPANY-13240734

PATIENT
  Age: 53 Year

DRUGS (1)
  1. PARAPLATIN [Suspect]

REACTIONS (1)
  - DEATH [None]
